FAERS Safety Report 17973922 (Version 4)
Quarter: 2020Q3

REPORT INFORMATION
  Report Type: Spontaneous
  Country: US (occurrence: US)
  Receive Date: 20200702
  Receipt Date: 20200923
  Transmission Date: 20201103
  Serious: Yes (Other)
  Sender: FDA-Public Use
  Company Number: US-PFIZER INC-2020253789

PATIENT
  Age: 54 Year
  Sex: Female

DRUGS (1)
  1. XELJANZ XR [Suspect]
     Active Substance: TOFACITINIB CITRATE
     Indication: RHEUMATOID ARTHRITIS
     Dosage: 11 MG, DAILY
     Route: 048
     Dates: start: 2019

REACTIONS (9)
  - Joint range of motion decreased [Unknown]
  - Memory impairment [Unknown]
  - Peripheral swelling [Unknown]
  - Arthralgia [Recovering/Resolving]
  - Joint noise [Unknown]
  - Product dose omission issue [Unknown]
  - Pain in extremity [Recovering/Resolving]
  - Back pain [Unknown]
  - Therapy non-responder [Unknown]
